FAERS Safety Report 8619698-7 (Version None)
Quarter: 2012Q3

REPORT INFORMATION
  Report Type: 
  Country: None (occurrence: None)
  Receive Date: 20120816
  Receipt Date: 20120816
  Transmission Date: 20120928
  Serious: No
  Sender: FDA-Public Use
  Company Number: None

PATIENT
  Age: 45 Year
  Sex: Female
  Weight: 78.0187 kg

DRUGS (1)
  1. LYBREL [Suspect]
     Indication: CONTRACEPTION
     Dosage: 1 TABLET PER DAY DAILY PO
     Route: 048
     Dates: start: 20120101, end: 20120507

REACTIONS (5)
  - DIZZINESS [None]
  - WEIGHT INCREASED [None]
  - VAGINAL HAEMORRHAGE [None]
  - APPETITE DISORDER [None]
  - METRORRHAGIA [None]
